FAERS Safety Report 9192048 (Version 4)
Quarter: 2013Q2

REPORT INFORMATION
  Report Type: Spontaneous
  Country: IT (occurrence: None)
  Receive Date: 20130325
  Receipt Date: 20130516
  Transmission Date: 20140414
  Serious: Yes (Death, Hospitalization)
  Sender: FDA-Public Use
  Company Number: AUR-APL-2013-02511

PATIENT
  Age: 78 Year
  Sex: Male

DRUGS (3)
  1. METFORMIN [Suspect]
     Indication: TYPE 2 DIABETES MELLITUS
     Route: 048
     Dates: start: 20120101, end: 20130128
  2. ENAPREN [Concomitant]
  3. ACETYLSALICYLIC ACID (ACETYLSALICYLIC ACID) [Concomitant]

REACTIONS (9)
  - Lactic acidosis [None]
  - Prerenal failure [None]
  - Drug abuse [None]
  - Hypotension [None]
  - Agitation [None]
  - Tachypnoea [None]
  - Vomiting [None]
  - Cardiac failure [None]
  - Multi-organ failure [None]
